FAERS Safety Report 13697762 (Version 1)
Quarter: 2017Q2

REPORT INFORMATION
  Report Type: Report from Study
  Country: IT (occurrence: IT)
  Receive Date: 20170628
  Receipt Date: 20170628
  Transmission Date: 20170830
  Serious: Yes (Life-Threatening)
  Sender: FDA-Public Use
  Company Number: IT-MYLANLABS-2017M1037461

PATIENT

DRUGS (1)
  1. KETOPROFEN. [Suspect]
     Active Substance: KETOPROFEN
     Indication: HEADACHE
     Dosage: 80MG
     Route: 048

REACTIONS (3)
  - Angioedema [Recovered/Resolved]
  - Contraindicated drug prescribed [Recovered/Resolved]
  - Urticaria [Recovered/Resolved]
